FAERS Safety Report 15287935 (Version 1)
Quarter: 2018Q3

REPORT INFORMATION
  Report Type: Spontaneous
  Country: US (occurrence: US)
  Receive Date: 20180817
  Receipt Date: 20180817
  Transmission Date: 20181010
  Serious: No
  Sender: FDA-Public Use
  Company Number: US-PFIZER INC-2018328923

PATIENT
  Age: 64 Year
  Sex: Female

DRUGS (1)
  1. ADVIL LIQUI?GELS [Suspect]
     Active Substance: IBUPROFEN
     Indication: PAIN
     Dosage: 1 DF, 1X/DAY (TAKE ONE BEFORE BED)

REACTIONS (3)
  - Malaise [Unknown]
  - Fatigue [Unknown]
  - Dyspepsia [Unknown]
